FAERS Safety Report 26135833 (Version 1)
Quarter: 2025Q4

REPORT INFORMATION
  Report Type: Spontaneous
  Country: US (occurrence: US)
  Receive Date: 20251209
  Receipt Date: 20251209
  Transmission Date: 20260118
  Serious: No
  Sender: GILEAD
  Company Number: US-GILEAD-2025-0739833

PATIENT
  Age: 37 Year
  Sex: Female
  Weight: 124.72 kg

DRUGS (2)
  1. YEZTUGO [Suspect]
     Active Substance: LENACAPAVIR SODIUM
     Indication: Product used for unknown indication
     Dosage: UNK
     Route: 058
  2. YEZTUGO [Suspect]
     Active Substance: LENACAPAVIR SODIUM
     Indication: Product used for unknown indication
     Route: 048

REACTIONS (1)
  - Injection site discharge [Unknown]
